FAERS Safety Report 6046409-4 (Version None)
Quarter: 2009Q1

REPORT INFORMATION
  Report Type: 
  Country: None (occurrence: None)
  Receive Date: 20090122
  Receipt Date: 20090115
  Transmission Date: 20090719
  Serious: Yes (Other)
  Sender: FDA-Public Use
  Company Number: CA-ASTRAZENECA-2009UW01392

PATIENT
  Age: 59 Year
  Sex: Female
  Weight: 91 kg

DRUGS (8)
  1. NEXIUM [Suspect]
     Route: 048
  2. ANTACID TAB [Concomitant]
  3. CALCIUM W/VITAMIN D [Concomitant]
  4. HYDROCHLOROTHIAZIDE [Concomitant]
  5. LEVOTHYROXINE SODIUM [Concomitant]
  6. PREVACID [Concomitant]
  7. TUMS [Concomitant]
  8. ASCORBIC ACID [Concomitant]

REACTIONS (13)
  - BLISTER [None]
  - BURNING SENSATION [None]
  - DYSPHAGIA [None]
  - EMBOLISM [None]
  - EYE DISORDER [None]
  - FAECES DISCOLOURED [None]
  - OCULAR HYPERAEMIA [None]
  - PAIN [None]
  - PRURITUS [None]
  - RASH [None]
  - TONGUE DISCOLOURATION [None]
  - TONGUE DISORDER [None]
  - TONGUE EXFOLIATION [None]
